FAERS Safety Report 26059998 (Version 1)
Quarter: 2025Q4

REPORT INFORMATION
  Report Type: Report from Study
  Country: US (occurrence: US)
  Receive Date: 20251118
  Receipt Date: 20251118
  Transmission Date: 20260117
  Serious: Yes (Death)
  Sender: ALNYLAM PHARMACEUTICALS
  Company Number: US-ALNYLAM PHARMACEUTICALS, INC.-ALN-2025-007252

PATIENT
  Age: 47 Year

DRUGS (1)
  1. OXLUMO [Suspect]
     Active Substance: LUMASIRAN
     Indication: Product used for unknown indication
     Dosage: 240 MILLIGRAM, Q3M (ADMINISTER 3 MG/KG SUBCUTANEOUSLY ONCE EVERY 3 MONTHS)

REACTIONS (1)
  - Death [Fatal]
